FAERS Safety Report 20311178 (Version 6)
Quarter: 2022Q1

REPORT INFORMATION
  Report Type: Report from Study
  Country: ES (occurrence: None)
  Receive Date: 20220107
  Receipt Date: 20220204
  Transmission Date: 20220423
  Serious: Yes (Life-Threatening, Hospitalization)
  Sender: FDA-Public Use
  Company Number: ES-Eisai Medical Research-EC-2022-106478

PATIENT
  Age: 74 Year
  Sex: Male
  Weight: 68 kg

DRUGS (22)
  1. PEMBROLIZUMAB [Suspect]
     Active Substance: PEMBROLIZUMAB
     Indication: Hepatocellular carcinoma
     Route: 041
     Dates: start: 20211004, end: 20211115
  2. PEMBROLIZUMAB [Suspect]
     Active Substance: PEMBROLIZUMAB
     Route: 041
     Dates: start: 20211228, end: 20211228
  3. LENVATINIB [Suspect]
     Active Substance: LENVATINIB
     Indication: Hepatocellular carcinoma
     Dosage: STARTING DOSE AT 12 MG, DOSE FLUCTUATED
     Route: 048
     Dates: start: 20211004, end: 20211218
  4. LENVATINIB [Suspect]
     Active Substance: LENVATINIB
     Route: 048
     Dates: start: 20211219, end: 20211219
  5. DUTASTERIDE\TAMSULOSIN [Concomitant]
     Active Substance: DUTASTERIDE\TAMSULOSIN
     Dates: start: 20210903
  6. LANTUS [Concomitant]
     Active Substance: INSULIN GLARGINE
     Dates: start: 20210819
  7. LESCOL PROLIB [Concomitant]
     Dates: start: 202109
  8. ENALAPRIL [Concomitant]
     Active Substance: ENALAPRIL
     Dates: start: 202109
  9. ZOLPIDEM [Concomitant]
     Active Substance: ZOLPIDEM TARTRATE
     Dates: start: 202109
  10. OMACOR [Concomitant]
     Active Substance: OMEGA-3-ACID ETHYL ESTERS
     Dates: start: 202109
  11. INSULIN ASPART [Concomitant]
     Active Substance: INSULIN ASPART
     Dates: start: 202109
  12. OMEPRAZOLE [Concomitant]
     Active Substance: OMEPRAZOLE
     Dates: start: 202109
  13. AMLODIPINE [Concomitant]
     Active Substance: AMLODIPINE BESYLATE
     Dates: start: 202109
  14. LEXATIN [Concomitant]
     Dates: start: 202109
  15. TRAMADOL HYDROCHLORIDE [Concomitant]
     Active Substance: TRAMADOL HYDROCHLORIDE
     Dates: start: 202109
  16. PARACETAMOL;TRAMADOL HYDROCHLORIDE [Concomitant]
     Dates: start: 202109
  17. JANUMET [Concomitant]
     Active Substance: METFORMIN HYDROCHLORIDE\SITAGLIPTIN PHOSPHATE
     Dates: start: 202109
  18. SOLINITRINA [Concomitant]
     Dates: start: 202109
  19. CARVEDILOL [Concomitant]
     Active Substance: CARVEDILOL
     Dates: start: 202109
  20. EZETIMIBE [Concomitant]
     Active Substance: EZETIMIBE
     Dates: start: 202109
  21. LOPERAMIDE HYDROCHLORIDE [Concomitant]
     Active Substance: LOPERAMIDE HYDROCHLORIDE
     Dates: start: 20211018
  22. PLAVIX [Concomitant]
     Active Substance: CLOPIDOGREL BISULFATE
     Dates: start: 20211227

REACTIONS (1)
  - Oesophageal varices haemorrhage [Recovered/Resolved]

NARRATIVE: CASE EVENT DATE: 20211229
